FAERS Safety Report 11634430 (Version 1)
Quarter: 2015Q4

REPORT INFORMATION
  Report Type: Spontaneous
  Country: US (occurrence: US)
  Receive Date: 20151015
  Receipt Date: 20151015
  Transmission Date: 20160304
  Serious: No
  Sender: FDA-Public Use
  Company Number: US-BAYER-2015-441667

PATIENT
  Age: 75 Year
  Sex: Female

DRUGS (1)
  1. OXYTROL FOR WOMEN [Suspect]
     Active Substance: OXYBUTYNIN
     Indication: HYPERTONIC BLADDER
     Dosage: 1 DF, 1 EVERY 4 DAYS
     Route: 061
     Dates: start: 20150314

REACTIONS (4)
  - Burns second degree [Recovered/Resolved]
  - Skin exfoliation [Recovered/Resolved]
  - Drug ineffective [None]
  - Skin disorder [Recovered/Resolved]
